FAERS Safety Report 18485779 (Version 1)
Quarter: 2020Q4

REPORT INFORMATION
  Report Type: Spontaneous
  Country: DE (occurrence: DE)
  Receive Date: 20201110
  Receipt Date: 20201110
  Transmission Date: 20210114
  Serious: Yes (Hospitalization)
  Sender: FDA-Public Use
  Company Number: DE-HRARD-202000856

PATIENT
  Age: 25 Year
  Sex: Female

DRUGS (9)
  1. METOPROLOL. [Concomitant]
     Active Substance: METOPROLOL
     Indication: HYPERTENSION
     Dosage: 95 MG BID
     Route: 048
  2. SPIRONOLACTONE. [Concomitant]
     Active Substance: SPIRONOLACTONE
     Indication: CUSHING^S SYNDROME
     Dosage: 100 MG BID
  3. URAPIDIL [Concomitant]
     Active Substance: URAPIDIL
     Indication: HYPERTENSION
     Dosage: STOPPED SEVERAL DAYS AFTER INITIATION OF TREATMENT WITH METYRAPONE AND SPIRONOLACTONE
     Route: 042
  4. HYDRALAZINE [Concomitant]
     Active Substance: HYDRALAZINE HYDROCHLORIDE
     Indication: HYPERTENSION
     Dosage: 25 MG TID
     Route: 048
  5. HYDRALAZINE [Concomitant]
     Active Substance: HYDRALAZINE HYDROCHLORIDE
     Dosage: STOPPED SEVERAL DAYS AFTER INITIATION OF TREATMENT WITH METYRAPONE AND SPIRONOLACTONE
     Route: 042
  6. METHYLDOPA. [Concomitant]
     Active Substance: METHYLDOPA
     Indication: HYPERTENSION
     Dosage: 12.5 MG BID
     Route: 048
  7. NIFEDIPINE. [Concomitant]
     Active Substance: NIFEDIPINE
     Indication: HYPERTENSION
     Dosage: 20 MG BID
     Route: 048
  8. METYRAPONE [Suspect]
     Active Substance: METYRAPONE
     Indication: CUSHING^S SYNDROME
  9. HYDROCHLOROTHIAZIDE. [Concomitant]
     Active Substance: HYDROCHLOROTHIAZIDE
     Indication: HYPERTENSION
     Dosage: 12.5 MG BID
     Route: 048

REACTIONS (3)
  - Pre-eclampsia [Recovered/Resolved]
  - Exposure during pregnancy [Recovered/Resolved]
  - Premature delivery [Recovered/Resolved]
